FAERS Safety Report 8833241 (Version 1)
Quarter: 2012Q4

REPORT INFORMATION
  Report Type: 
  Country: US (occurrence: US)
  Receive Date: 20121010
  Receipt Date: 20121010
  Transmission Date: 20130627
  Serious: Yes (Hospitalization)
  Sender: FDA-Public Use
  Company Number: PHEH2012US019623

PATIENT
  Sex: Female

DRUGS (4)
  1. CLOZAPINE [Suspect]
     Dosage: 200 mg, two x daily
  2. LUVOX [Concomitant]
     Dosage: 200 mg, one x daily
  3. CLONAPIN [Concomitant]
     Dosage: 2 mg, two x daily
  4. LAMENDA [Concomitant]

REACTIONS (6)
  - Schizoaffective disorder [Unknown]
  - Bipolar disorder [Unknown]
  - General physical health deterioration [Unknown]
  - Malaise [Unknown]
  - Hypophagia [Unknown]
  - Negative thoughts [Unknown]
